FAERS Safety Report 15884301 (Version 1)
Quarter: 2019Q1

REPORT INFORMATION
  Report Type: Spontaneous
  Country: US (occurrence: US)
  Receive Date: 20190107
  Receipt Date: 20190107
  Transmission Date: 20190417
  Serious: No
  Sender: FDA-Public Use
  Company Number: None

PATIENT
  Age: 40 Year
  Sex: Female

DRUGS (1)
  1. GLATIRAMER  40MG PFS INJ (12/BOX) [Suspect]
     Active Substance: GLATIRAMER
     Dates: start: 20181207

REACTIONS (3)
  - Tremor [None]
  - Pyrexia [None]
  - Feeling cold [None]

NARRATIVE: CASE EVENT DATE: 20181219
